FAERS Safety Report 9207993 (Version 2)
Quarter: 2013Q2

REPORT INFORMATION
  Report Type: Spontaneous
  Country: US (occurrence: US)
  Receive Date: 20130403
  Receipt Date: 20130530
  Transmission Date: 20140414
  Serious: Yes (Hospitalization)
  Sender: FDA-Public Use
  Company Number: US-B.I. PHARMACEUTICALS,INC./RIDGEFIELD-2013-BI-08818BP

PATIENT
  Age: 61 Year
  Sex: Female
  Weight: 90.72 kg

DRUGS (14)
  1. PRADAXA [Suspect]
     Indication: ANTICOAGULANT THERAPY
     Dates: start: 201106, end: 201111
  2. CARVEDILOL [Concomitant]
  3. LEVOTHYROXINE [Concomitant]
  4. FUROSEMIDE [Concomitant]
  5. CRESTOR [Concomitant]
  6. POTASSIUM CHLORIDE [Concomitant]
  7. MONTELUKAST [Concomitant]
  8. NOVOLIN [Concomitant]
  9. SINGULAIR [Concomitant]
  10. QVAR [Concomitant]
  11. ENALAPRIL [Concomitant]
  12. AMIODARONE [Concomitant]
  13. CAL-MAG-ZINC [Concomitant]
  14. FISH OIL [Concomitant]

REACTIONS (2)
  - Gastrointestinal haemorrhage [Unknown]
  - Rectal haemorrhage [Unknown]
